FAERS Safety Report 19634242 (Version 4)
Quarter: 2021Q3

REPORT INFORMATION
  Report Type: Report from Study
  Country: US (occurrence: US)
  Receive Date: 20210729
  Receipt Date: 20210901
  Transmission Date: 20211014
  Serious: Yes (Hospitalization, Other)
  Sender: FDA-Public Use
  Company Number: NVSC2021US169603

PATIENT
  Sex: Male

DRUGS (4)
  1. ENTRESTO [Suspect]
     Active Substance: SACUBITRIL\VALSARTAN
     Indication: CARDIAC FAILURE
     Dosage: 1 DF (49 / 51 MG), BID
     Route: 065
     Dates: start: 20210623
  2. ENTRESTO [Suspect]
     Active Substance: SACUBITRIL\VALSARTAN
     Dosage: UNK
     Route: 048
  3. SPIRONOLACTONE. [Suspect]
     Active Substance: SPIRONOLACTONE
     Indication: PRODUCT USED FOR UNKNOWN INDICATION
     Dosage: 0.5 DF (25 MG), QD
     Route: 065
  4. SPIRONOLACTONE. [Suspect]
     Active Substance: SPIRONOLACTONE
     Dosage: 1 DF (25 MG), UNKNOWN
     Route: 065
     Dates: start: 20210715

REACTIONS (7)
  - COVID-19 [Unknown]
  - Dyspnoea [Unknown]
  - Hypoacusis [Unknown]
  - Malaise [Unknown]
  - Myocardial infarction [Unknown]
  - Hypotension [Unknown]
  - Chronic obstructive pulmonary disease [Unknown]
